FAERS Safety Report 8408104-3 (Version None)
Quarter: 2012Q2

REPORT INFORMATION
  Report Type: 
  Country: None (occurrence: None)
  Receive Date: 20120604
  Receipt Date: 20120525
  Transmission Date: 20120825
  Serious: Yes (Other)
  Sender: FDA-Public Use
  Company Number: US-ASTRAZENECA-2012SE34003

PATIENT
  Age: 52 Year
  Sex: Male

DRUGS (2)
  1. INSULIN [Concomitant]
  2. BRILINTA [Suspect]
     Route: 048
     Dates: start: 20120101

REACTIONS (1)
  - CONVULSION [None]
